FAERS Safety Report 15241696 (Version 1)
Quarter: 2018Q3

REPORT INFORMATION
  Report Type: Spontaneous
  Country: US (occurrence: US)
  Receive Date: 20180712
  Receipt Date: 20180712
  Transmission Date: 20181010
  Serious: Yes (Life-Threatening, Hospitalization, Disabling)
  Sender: FDA-Public Use
  Company Number: None

PATIENT
  Age: 79 Year
  Sex: Male
  Weight: 83.91 kg

DRUGS (12)
  1. AMBIEN [Suspect]
     Active Substance: ZOLPIDEM TARTRATE
     Route: 048
     Dates: start: 20180511, end: 20180524
  2. DEMADEX [Concomitant]
     Active Substance: TORSEMIDE
  3. METFORMIN [Concomitant]
     Active Substance: METFORMIN HYDROCHLORIDE
  4. B VIT [Concomitant]
  5. CA, ZINC, MAG CHERRY EXTRACT [Concomitant]
  6. LISINOPRIL. [Concomitant]
     Active Substance: LISINOPRIL
  7. ZESTRIL [Concomitant]
     Active Substance: LISINOPRIL
  8. POTASSIUM [Concomitant]
     Active Substance: POTASSIUM
  9. LEVOTHYROXINE. [Concomitant]
     Active Substance: LEVOTHYROXINE
  10. MULTIVITAMIN [Concomitant]
     Active Substance: VITAMINS
  11. GLUCOSAMINE [Concomitant]
     Active Substance: GLUCOSAMINE
  12. ZETIA [Concomitant]
     Active Substance: EZETIMIBE

REACTIONS (9)
  - Balance disorder [None]
  - Seizure [None]
  - Speech disorder [None]
  - Aggression [None]
  - Hypophagia [None]
  - Hallucination [None]
  - Gait inability [None]
  - Personality change [None]
  - Product use issue [None]

NARRATIVE: CASE EVENT DATE: 20180511
